FAERS Safety Report 5829332-7 (Version None)
Quarter: 2008Q3

REPORT INFORMATION
  Report Type: 
  Country: None (occurrence: None)
  Receive Date: 20080731
  Receipt Date: 20080730
  Transmission Date: 20090109
  Serious: Yes (Death, Life-Threatening, Hospitalization, Disabling)
  Sender: FDA-Public Use
  Company Number: JP-BOEHRINGER INGELHEIM GMBH, GERMANY-2008-BP-08225NB

PATIENT
  Sex: Female
  Weight: 45 kg

DRUGS (4)
  1. MICARDIS [Suspect]
     Indication: HYPERTENSION
     Route: 048
     Dates: start: 20061028, end: 20070330
  2. PERSANTIN-L CAPSULE [Concomitant]
     Route: 048
     Dates: start: 20061028, end: 20070410
  3. ACTOS [Concomitant]
     Route: 048
     Dates: start: 20061106, end: 20070410
  4. LIVALO [Concomitant]
     Route: 048
     Dates: start: 20070129, end: 20070410

REACTIONS (5)
  - BLOOD PRESSURE DECREASED [None]
  - CARDIAC FAILURE [None]
  - CEREBRAL INFARCTION [None]
  - GENERAL PHYSICAL HEALTH DETERIORATION [None]
  - RENAL FAILURE CHRONIC [None]
